FAERS Safety Report 8143451-4 (Version None)
Quarter: 2012Q1

REPORT INFORMATION
  Report Type: 
  Country: None (occurrence: None)
  Receive Date: 20120215
  Receipt Date: 20120215
  Transmission Date: 20120608
  Serious: Yes (Hospitalization)
  Sender: FDA-Public Use
  Company Number: None

PATIENT
  Age: 57 Year
  Sex: Male
  Weight: 90.2 kg

DRUGS (1)
  1. METHYLPREDNISOLONE [Suspect]
     Indication: GOUT
     Dosage: 125 MG ONCE IM
     Route: 030
     Dates: start: 20120207, end: 20120207

REACTIONS (3)
  - EYE PAIN [None]
  - DYSPNOEA [None]
  - HEADACHE [None]
